FAERS Safety Report 12659136 (Version 1)
Quarter: 2016Q3

REPORT INFORMATION
  Report Type: Spontaneous
  Country: US (occurrence: US)
  Receive Date: 20160817
  Receipt Date: 20160817
  Transmission Date: 20161109
  Serious: Yes (Death, Other)
  Sender: FDA-Public Use
  Company Number: US-PFIZER INC-2016387586

PATIENT
  Sex: Female

DRUGS (3)
  1. LYRICA [Suspect]
     Active Substance: PREGABALIN
     Dosage: 300 MG/DAY
  2. LYRICA [Suspect]
     Active Substance: PREGABALIN
     Dosage: 450 MG/DAY
  3. LYRICA [Suspect]
     Active Substance: PREGABALIN
     Indication: NEURALGIA
     Dosage: 300 MG/DAY

REACTIONS (4)
  - Neoplasm malignant [Fatal]
  - Suicidal ideation [Recovered/Resolved]
  - Product use issue [Fatal]
  - Disease progression [Fatal]
